FAERS Safety Report 8436137-X (Version None)
Quarter: 2012Q2

REPORT INFORMATION
  Report Type: 
  Country: None (occurrence: None)
  Receive Date: 20120614
  Receipt Date: 20120601
  Transmission Date: 20120825
  Serious: Yes (Life-Threatening, Hospitalization)
  Sender: FDA-Public Use
  Company Number: NO-BAYER-2012-019297

PATIENT
  Age: 12 Year
  Sex: Female
  Weight: 51.2 kg

DRUGS (3)
  1. OMEPRAZOLE [Concomitant]
     Dosage: 20 MG, HS
     Dates: start: 20111118
  2. VALPROIC ACID [Interacting]
     Indication: SYDENHAM'S CHOREA
     Dosage: 150 MORNING + 300 MG EVENING
     Dates: start: 20111117, end: 20111201
  3. ASPIRIN [Suspect]
     Indication: RHEUMATIC FEVER
     Dosage: 1 G, UNK
     Dates: start: 20111118, end: 20111201

REACTIONS (7)
  - COORDINATION ABNORMAL [None]
  - FATIGUE [None]
  - GAIT DISTURBANCE [None]
  - LABELLED DRUG-DRUG INTERACTION MEDICATION ERROR [None]
  - ACID BASE BALANCE ABNORMAL [None]
  - CONFUSIONAL STATE [None]
  - TOXICITY TO VARIOUS AGENTS [None]
